FAERS Safety Report 15094811 (Version 3)
Quarter: 2023Q1

REPORT INFORMATION
  Report Type: Spontaneous
  Country: US (occurrence: US)
  Receive Date: 20180701
  Receipt Date: 20230323
  Transmission Date: 20230418
  Serious: Yes (Death, Other)
  Sender: FDA-Public Use
  Company Number: US-009507513-1806USA012869

PATIENT
  Sex: Male

DRUGS (1)
  1. JANUMET [Suspect]
     Active Substance: METFORMIN HYDROCHLORIDE\SITAGLIPTIN PHOSPHATE
     Dosage: 50/1000 MG, BID
     Route: 048
     Dates: start: 201204, end: 201603

REACTIONS (17)
  - Pancreatic carcinoma [Fatal]
  - Neuropathy peripheral [Not Recovered/Not Resolved]
  - Type 2 diabetes mellitus [Not Recovered/Not Resolved]
  - Pulmonary hypertension [Unknown]
  - Arteriosclerosis coronary artery [Unknown]
  - Acquired mixed hyperlipidaemia [Unknown]
  - Fall [Unknown]
  - Fall [Unknown]
  - Fall [Unknown]
  - Hyperglycaemia [Not Recovered/Not Resolved]
  - Obesity [Unknown]
  - Jaundice [Unknown]
  - Weight decreased [Not Recovered/Not Resolved]
  - Drug hypersensitivity [Not Recovered/Not Resolved]
  - Abdominal pain [Not Recovered/Not Resolved]
  - Hypertensive heart disease [Unknown]
  - Depression [Unknown]

NARRATIVE: CASE EVENT DATE: 20150624
